FAERS Safety Report 11599478 (Version 1)
Quarter: 2015Q4

REPORT INFORMATION
  Report Type: Spontaneous
  Country: RU (occurrence: RU)
  Receive Date: 20151006
  Receipt Date: 20151006
  Transmission Date: 20160304
  Serious: Yes (Life-Threatening, Hospitalization, Other)
  Sender: FDA-Public Use
  Company Number: RU-ASTRAZENECA-2015SE95300

PATIENT
  Age: 6 Year
  Sex: Male

DRUGS (3)
  1. NUROFEN [Concomitant]
     Active Substance: IBUPROFEN
     Indication: RESPIRATORY TRACT INFECTION
     Dosage: ONCE/SINGLE ADMINISTRATION
  2. SINGULAIR [Concomitant]
     Active Substance: MONTELUKAST SODIUM
  3. PULMICORT TURBUHALER [Suspect]
     Active Substance: BUDESONIDE
     Indication: ASTHMA
     Route: 055
     Dates: start: 201507

REACTIONS (3)
  - Respiratory tract infection [Unknown]
  - Gastritis erosive [Unknown]
  - Gastrointestinal haemorrhage [Recovering/Resolving]

NARRATIVE: CASE EVENT DATE: 20151001
